FAERS Safety Report 6142005-9 (Version None)
Quarter: 2009Q2

REPORT INFORMATION
  Report Type: 
  Country: None (occurrence: None)
  Receive Date: 20090402
  Receipt Date: 20090326
  Transmission Date: 20091009
  Serious: Yes (Hospitalization)
  Sender: FDA-Public Use
  Company Number: GB-B.I. PHARMACEUTICALS,INC./RIDGEFIELD-2009-UK-00283UK

PATIENT
  Age: 82 Year
  Sex: Male

DRUGS (12)
  1. TIOTROPIUM (00015/0190/A) [Suspect]
     Route: 055
  2. CARVEDILOL [Suspect]
     Route: 048
  3. CLARITHROMYCIN [Suspect]
     Route: 048
  4. DIAZEPAM [Suspect]
     Route: 065
  5. DIGOXIN [Suspect]
     Route: 048
  6. FRUSEMIDE [Suspect]
     Route: 065
  7. PAROXETINE HYDROCHLORIDE [Suspect]
     Indication: DEPRESSION
     Dosage: 40MG
     Route: 048
     Dates: start: 20090127, end: 20090309
  8. SALMETEROL XINAFOATE [Suspect]
     Route: 055
  9. SULPIRIDE [Suspect]
     Route: 065
  10. THEOPHYLLINE [Suspect]
     Route: 048
  11. VERAPAMIL [Suspect]
     Route: 065
  12. DANTROLENE SODIUM [Concomitant]

REACTIONS (4)
  - CONVULSION [None]
  - HYPERTHERMIA [None]
  - MUSCULOSKELETAL STIFFNESS [None]
  - NEUROLEPTIC MALIGNANT SYNDROME [None]
